FAERS Safety Report 9109372 (Version 3)
Quarter: 2013Q1

REPORT INFORMATION
  Report Type: Spontaneous
  Country: JP (occurrence: JP)
  Receive Date: 20130222
  Receipt Date: 20130322
  Transmission Date: 20140127
  Serious: Yes (Hospitalization, Other)
  Sender: FDA-Public Use
  Company Number: JP-AMGEN-JPNSP2013012384

PATIENT
  Age: 70 Year
  Sex: Male
  Weight: 55 kg

DRUGS (15)
  1. RANMARK [Suspect]
     Indication: PROSTATE CANCER METASTATIC
     Route: 058
     Dates: start: 20120907, end: 20130124
  2. ZOMETA [Suspect]
     Indication: PRODUCT USED FOR UNKNOWN INDICATION
     Route: 041
     Dates: start: 20110701, end: 201208
  3. WARFARIN [Concomitant]
     Route: 048
  4. CRESTOR [Concomitant]
     Route: 048
  5. ZETIA [Concomitant]
     Route: 048
  6. JANUVIA [Concomitant]
     Route: 048
  7. DECADRON                           /00016001/ [Concomitant]
     Route: 048
  8. UFT [Concomitant]
     Route: 048
  9. LEUPLIN [Concomitant]
     Dosage: UNKNOWN
     Route: 058
  10. FLIVAS [Concomitant]
     Route: 048
  11. CELECOX [Concomitant]
     Route: 048
     Dates: start: 20120909
  12. DOCETAXEL [Concomitant]
     Dosage: UNKNOWN
     Route: 041
     Dates: start: 20120828
  13. DECADRON [Concomitant]
     Route: 048
  14. LEUPLIN SR [Concomitant]
     Dosage: UNKNOWN
     Route: 058
  15. FLIVAS OD [Concomitant]
     Route: 048

REACTIONS (1)
  - Osteomyelitis [Recovering/Resolving]
